FAERS Safety Report 6763890-3 (Version None)
Quarter: 2010Q2

REPORT INFORMATION
  Report Type: 
  Country: None (occurrence: None)
  Receive Date: 20100610
  Receipt Date: 20100604
  Transmission Date: 20101027
  Serious: Yes (Other)
  Sender: FDA-Public Use
  Company Number: JP-PFIZER INC-2010062660

PATIENT
  Age: 84 Year
  Sex: Female

DRUGS (1)
  1. ATARAX [Suspect]
     Indication: PRURITUS
     Dosage: 75 MG DAILY
     Route: 048
     Dates: start: 20100225

REACTIONS (1)
  - BLOOD POTASSIUM INCREASED [None]
